FAERS Safety Report 8318650-9 (Version None)
Quarter: 2012Q2

REPORT INFORMATION
  Report Type: 
  Country: None (occurrence: None)
  Receive Date: 20120427
  Receipt Date: 20120424
  Transmission Date: 20120825
  Serious: Yes (Hospitalization, Other)
  Sender: FDA-Public Use
  Company Number: CA-ASTRAZENECA-2012SE26673

PATIENT
  Age: 71 Year
  Sex: Female

DRUGS (14)
  1. ATORVASTATIN CALCIUM [Concomitant]
     Route: 048
     Dates: start: 20120331, end: 20120422
  2. ZOFRAN [Concomitant]
     Indication: NAUSEA
     Dosage: AS REQUIRED
  3. PLAVIX [Concomitant]
     Route: 048
     Dates: start: 20120331, end: 20120405
  4. BRILINTA [Suspect]
     Indication: ACUTE CORONARY SYNDROME
     Route: 048
     Dates: start: 20120405, end: 20120423
  5. PERINDOPRIL [Concomitant]
     Route: 048
     Dates: start: 20120331, end: 20120420
  6. FLAGYL [Concomitant]
     Route: 042
     Dates: start: 20120423
  7. BRILINTA [Suspect]
     Indication: MYOCARDIAL INFARCTION
     Route: 048
     Dates: start: 20120405, end: 20120423
  8. CEFTRIAXONE [Concomitant]
     Dates: start: 20120418
  9. PANTOPRAZOLE SODIUM [Concomitant]
     Route: 048
     Dates: start: 20120409
  10. COLCHICINE [Concomitant]
     Indication: GOUT
     Route: 048
     Dates: start: 20120407, end: 20120409
  11. NITROGLYCERIN [Concomitant]
     Route: 061
     Dates: start: 20120331
  12. METOPROLOL TARTRATE [Concomitant]
     Route: 048
     Dates: start: 20120331
  13. ASPIRIN [Concomitant]
     Route: 048
     Dates: start: 20120331
  14. AMLODIPINE [Concomitant]
     Route: 048
     Dates: start: 20120331, end: 20120409

REACTIONS (6)
  - FATIGUE [None]
  - MYALGIA [None]
  - RENAL IMPAIRMENT [None]
  - LIVER FUNCTION TEST ABNORMAL [None]
  - CHEST PAIN [None]
  - STOMATITIS [None]
